FAERS Safety Report 5056754-7 (Version None)
Quarter: 2006Q2

REPORT INFORMATION
  Report Type: 
  Country: None (occurrence: None)
  Receive Date: 20060619
  Receipt Date: 20051205
  Transmission Date: 20061013
  Serious: Yes (Other)
  Sender: FDA-Public Use
  Company Number: US-2005-021803

PATIENT
  Age: 71 Year
  Sex: Male
  Weight: 110 kg

DRUGS (3)
  1. FLUDARA [Suspect]
     Indication: CHRONIC LYMPHOCYTIC LEUKAEMIA
     Dosage: 70 MG, INTRAVENOUS
     Route: 042
     Dates: start: 20050929, end: 20051003
  2. ATANAAL [Concomitant]
  3. HYDROCHLOROTHIAZIDE [Concomitant]

REACTIONS (1)
  - EXFOLIATIVE RASH [None]
